FAERS Safety Report 18257088 (Version 1)
Quarter: 2020Q3

REPORT INFORMATION
  Report Type: Spontaneous
  Country: US (occurrence: US)
  Receive Date: 20200911
  Receipt Date: 20200911
  Transmission Date: 20201103
  Serious: No
  Sender: FDA-Public Use
  Company Number: None

PATIENT
  Sex: Female

DRUGS (8)
  1. AMBRISENTAN 5MG TAB [Suspect]
     Active Substance: AMBRISENTAN
     Indication: PULMONARY HYPERTENSION
     Route: 048
  2. TYLENOL [Concomitant]
     Active Substance: ACETAMINOPHEN
  3. UPTRAVI [Suspect]
     Active Substance: SELEXIPAG
  4. FLOVENT HFA [Concomitant]
     Active Substance: FLUTICASONE PROPIONATE
  5. TADALAFIL. [Concomitant]
     Active Substance: TADALAFIL
  6. LACTULOSE. [Concomitant]
     Active Substance: LACTULOSE
  7. UPTRAVI [Concomitant]
     Active Substance: SELEXIPAG
  8. FAMOTIDINE. [Concomitant]
     Active Substance: FAMOTIDINE

REACTIONS (7)
  - Pain in extremity [None]
  - Flushing [None]
  - Erythema [None]
  - Abdominal pain upper [None]
  - Dyspepsia [None]
  - Diarrhoea [None]
  - Arthralgia [None]
